FAERS Safety Report 22318640 (Version 15)
Quarter: 2025Q4

REPORT INFORMATION
  Report Type: Report from Study
  Country: CA (occurrence: CA)
  Receive Date: 20230515
  Receipt Date: 20251210
  Transmission Date: 20260117
  Serious: Yes (Other)
  Sender: TAKEDA
  Company Number: CA-TAKEDA-2023TUS046646

PATIENT
  Age: 28 Year
  Sex: Female
  Weight: 58.1 kg

DRUGS (8)
  1. VEDOLIZUMAB [Suspect]
     Active Substance: VEDOLIZUMAB
     Indication: Colitis ulcerative
     Dosage: 300 MILLIGRAM
  2. VEDOLIZUMAB [Suspect]
     Active Substance: VEDOLIZUMAB
     Dosage: 300 MILLIGRAM, Q4WEEKS
     Dates: start: 20250506
  3. VEDOLIZUMAB [Suspect]
     Active Substance: VEDOLIZUMAB
     Dosage: 300 MILLIGRAM, Q4WEEKS
  4. VEDOLIZUMAB [Suspect]
     Active Substance: VEDOLIZUMAB
     Dosage: 300 MILLIGRAM, Q4WEEKS
  5. VENTOLIN [Concomitant]
     Active Substance: ALBUTEROL SULFATE
     Indication: Asthma
     Dosage: UNK
  6. FLOVENT [Concomitant]
     Active Substance: FLUTICASONE PROPIONATE
     Indication: Asthma
     Dosage: UNK
  7. MESALAMINE [Concomitant]
     Active Substance: MESALAMINE
     Dosage: UNK
  8. MESALAMINE [Concomitant]
     Active Substance: MESALAMINE
     Dosage: UNK

REACTIONS (27)
  - Haematochezia [Recovering/Resolving]
  - Colitis ulcerative [Recovering/Resolving]
  - Haematemesis [Unknown]
  - Frequent bowel movements [Recovering/Resolving]
  - Skin disorder [Unknown]
  - Weight decreased [Unknown]
  - Off label use [Unknown]
  - Abdominal pain upper [Unknown]
  - Proctalgia [Unknown]
  - Faeces hard [Unknown]
  - Abnormal faeces [Unknown]
  - Abdominal pain lower [Unknown]
  - Anal haemorrhage [Unknown]
  - Gastrointestinal pain [Recovering/Resolving]
  - Diarrhoea [Unknown]
  - Mucous stools [Unknown]
  - Anal inflammation [Unknown]
  - Dyspnoea [Unknown]
  - Heart rate increased [Unknown]
  - Abdominal pain [Unknown]
  - Chest pain [Unknown]
  - Asthenia [Unknown]
  - Vomiting [Unknown]
  - Abdominal distension [Unknown]
  - Nausea [Unknown]
  - Back pain [Unknown]
  - Fatigue [Unknown]

NARRATIVE: CASE EVENT DATE: 20250506
